FAERS Safety Report 9318681 (Version 1)
Quarter: 2013Q2

REPORT INFORMATION
  Report Type: Spontaneous
  Country: FR (occurrence: FR)
  Receive Date: 20130530
  Receipt Date: 20130530
  Transmission Date: 20140414
  Serious: Yes (Hospitalization)
  Sender: FDA-Public Use
  Company Number: FR-ELI_LILLY_AND_COMPANY-FR201305006513

PATIENT
  Age: 78 Year
  Sex: Female

DRUGS (3)
  1. FORSTEO [Suspect]
     Indication: OSTEOPOROSIS
     Dosage: 20 UG, QD
     Route: 058
     Dates: start: 20120328, end: 20130212
  2. CORTANCYL [Concomitant]
     Dosage: UNK
  3. ARAVA [Concomitant]
     Dosage: UNK

REACTIONS (1)
  - Dehydration [Not Recovered/Not Resolved]
